FAERS Safety Report 8784087 (Version 1)
Quarter: 2012Q4

REPORT INFORMATION
  Report Type: 
  Country: AT (occurrence: AT)
  Receive Date: 20120913
  Receipt Date: 20120913
  Transmission Date: 20130627
  Serious: Yes (Other)
  Sender: FDA-Public Use
  Company Number: PHHY2010AT094833

PATIENT
  Age: 39 Year
  Sex: Female

DRUGS (6)
  1. CLOZAPINE [Suspect]
     Dosage: 400 mg per day
     Route: 048
  2. CLOZAPINE [Suspect]
     Dosage: 600 mg per day
     Route: 048
  3. ZIPRASIDONE [Suspect]
  4. ARIPIPRAZOLE [Suspect]
     Dosage: 7.5 mg per day
  5. AMISULPRIDE [Suspect]
     Dosage: 1000 mg per day
  6. QUETIAPINE [Concomitant]
     Dosage: 800 mg per day

REACTIONS (14)
  - Catatonia [Recovering/Resolving]
  - Mutism [Recovering/Resolving]
  - Stupor [Recovering/Resolving]
  - Waxy flexibility [Recovering/Resolving]
  - Malaise [Unknown]
  - Tension [Unknown]
  - Motor dysfunction [Unknown]
  - Cognitive disorder [Unknown]
  - Disturbance in attention [Recovering/Resolving]
  - Memory impairment [Recovering/Resolving]
  - Morbid thoughts [Recovering/Resolving]
  - Anhedonia [Recovering/Resolving]
  - Apathy [Recovering/Resolving]
  - Extrapyramidal disorder [Unknown]
